FAERS Safety Report 8136376-1 (Version None)
Quarter: 2012Q1

REPORT INFORMATION
  Report Type: 
  Country: None (occurrence: None)
  Receive Date: 20120103
  Receipt Date: 20110823
  Transmission Date: 20120608
  Serious: No
  Sender: FDA-Public Use
  Company Number: AE-2011-001099

PATIENT
  Age: 51 Year
  Sex: Female
  Weight: 80.7403 kg

DRUGS (9)
  1. KLONOPIN [Concomitant]
  2. ADDERALL (OBETROL) [Concomitant]
  3. VENTOLIN HA INHALER (SALBUTAMOL) [Concomitant]
  4. INCIVEK [Suspect]
     Dosage: 2250 MG (750 MG, 1 IN 8 HR), ORAL
     Route: 048
     Dates: start: 20110819
  5. RIBAVIRIN [Concomitant]
  6. MORPHINE [Concomitant]
  7. CELEXA [Concomitant]
  8. IBUPROFEN [Concomitant]
  9. PEGASYS [Concomitant]

REACTIONS (7)
  - PYREXIA [None]
  - PAIN [None]
  - NASAL CONGESTION [None]
  - SINUS HEADACHE [None]
  - HEADACHE [None]
  - VOMITING [None]
  - FATIGUE [None]
